FAERS Safety Report 21761961 (Version 1)
Quarter: 2022Q4

REPORT INFORMATION
  Report Type: Spontaneous
  Country: US (occurrence: US)
  Receive Date: 20221221
  Receipt Date: 20221221
  Transmission Date: 20230113
  Serious: No
  Sender: FDA-Public Use
  Company Number: US-GE HEALTHCARE-2022CSU008284

PATIENT

DRUGS (2)
  1. OMNIPAQUE [Suspect]
     Active Substance: IOHEXOL
     Indication: Surgery
     Dosage: UNK UNK, SINGLE
     Route: 061
  2. OMNIPAQUE [Suspect]
     Active Substance: IOHEXOL
     Indication: Wound
     Dosage: UNK

REACTIONS (3)
  - Product use issue [Unknown]
  - Product selection error [Unknown]
  - No adverse event [Recovered/Resolved]
